FAERS Safety Report 4836399-1 (Version None)
Quarter: 2005Q4

REPORT INFORMATION
  Report Type: 
  Country: None (occurrence: None)
  Receive Date: 20051118
  Receipt Date: 20051115
  Transmission Date: 20060501
  Serious: Yes (Death, Life-Threatening, Hospitalization)
  Sender: FDA-Public Use
  Company Number: HQWYE197024OCT05

PATIENT
  Age: 69 Year
  Sex: Male

DRUGS (7)
  1. CORDARONE [Suspect]
     Indication: ATRIAL FIBRILLATION
     Dosage: 400 MG 1X PER 1 DAY, 200 MG 1X PER 1 DAY
     Route: 048
     Dates: start: 20041105, end: 20041122
  2. CORDARONE [Suspect]
     Indication: CARDIAC FAILURE
     Dosage: 400 MG 1X PER 1 DAY, 200 MG 1X PER 1 DAY
     Route: 048
     Dates: start: 20041105, end: 20041122
  3. CORDARONE [Suspect]
     Indication: ATRIAL FIBRILLATION
     Dosage: 400 MG 1X PER 1 DAY, 200 MG 1X PER 1 DAY
     Route: 048
     Dates: start: 20041123, end: 20050905
  4. CORDARONE [Suspect]
     Indication: CARDIAC FAILURE
     Dosage: 400 MG 1X PER 1 DAY, 200 MG 1X PER 1 DAY
     Route: 048
     Dates: start: 20041123, end: 20050905
  5. ASPIRIN [Suspect]
     Indication: MYOCARDIAL INFARCTION
     Dosage: 30-150 MG DAILY
     Route: 048
     Dates: start: 20050905
  6. HEPARIN [Suspect]
     Indication: MYOCARDIAL INFARCTION
     Dates: start: 20050905, end: 20050912
  7. TENECTEPLASE (TENECTEPLASE) [Suspect]
     Indication: MYOCARDIAL INFARCTION
     Dosage: 100 MG 1X PER 1 DAY
     Route: 042
     Dates: start: 20050905, end: 20050905

REACTIONS (7)
  - COMA [None]
  - DRUG INEFFECTIVE [None]
  - HYPERTHYROIDISM [None]
  - NERVOUSNESS [None]
  - PYREXIA [None]
  - THYROTOXIC CRISIS [None]
  - TREMOR [None]
